FAERS Safety Report 10666217 (Version 1)
Quarter: 2014Q4

REPORT INFORMATION
  Report Type: Spontaneous
  Country: FR (occurrence: FR)
  Receive Date: 20141219
  Receipt Date: 20141219
  Transmission Date: 20150529
  Serious: Yes (Hospitalization)
  Sender: FDA-Public Use
  Company Number: FR-ALLERGAN-1425965US

PATIENT
  Age: 88 Year
  Sex: Male

DRUGS (8)
  1. LAROXYL [Suspect]
     Active Substance: AMITRIPTYLINE
     Indication: PRODUCT USED FOR UNKNOWN INDICATION
     Route: 048
  2. STALEVO [Concomitant]
     Active Substance: CARBIDOPA\ENTACAPONE\LEVODOPA
  3. XATRAL [Concomitant]
     Active Substance: ALFUZOSIN
  4. DAFALGAN [Concomitant]
     Active Substance: ACETAMINOPHEN
  5. ROCEPHINE [Concomitant]
     Active Substance: CEFTRIAXONE SODIUM
     Indication: URINARY TRACT INFECTION
  6. MINRIN MELT [Concomitant]
  7. TROSPIUM CHLORIDE UNK [Suspect]
     Active Substance: TROSPIUM CHLORIDE
     Indication: NEUROGENIC BLADDER
     Dosage: UNK UNK, QD
     Route: 048
     Dates: end: 20141009
  8. KARDEGIC [Concomitant]
     Active Substance: ASPIRIN LYSINE

REACTIONS (2)
  - Parkinson^s disease [Unknown]
  - Confusional state [Unknown]
